FAERS Safety Report 23598987 (Version 2)
Quarter: 2024Q2

REPORT INFORMATION
  Report Type: Spontaneous
  Country: IT (occurrence: IT)
  Receive Date: 20240306
  Receipt Date: 20240410
  Transmission Date: 20240715
  Serious: No
  Sender: FDA-Public Use
  Company Number: None

PATIENT
  Age: 41 Year
  Sex: Female

DRUGS (4)
  1. KISQALI [Suspect]
     Active Substance: RIBOCICLIB
     Indication: Product used for unknown indication
     Dosage: 200 MG (200 MG DUE VOLTE AL GIORNO PER 21 GIORNI CONSECUTIVI, POI 7 GIORNI DI PAUSA.)
     Route: 065
     Dates: start: 20210518
  2. LETROZOLE [Concomitant]
     Active Substance: LETROZOLE
     Indication: Product used for unknown indication
     Dosage: UNK
     Route: 065
  3. CHOLECALCIFEROL [Concomitant]
     Active Substance: CHOLECALCIFEROL
     Indication: Product used for unknown indication
     Dosage: UNK
     Route: 065
  4. DECAPEPTYL [Concomitant]
     Indication: Product used for unknown indication
     Dosage: 3.75 MG ( UNK (3,75 MG 1 FL INTRAMUSCOLO OGNI 28 GIORNI))
     Route: 030

REACTIONS (1)
  - Sinus bradycardia [Not Recovered/Not Resolved]

NARRATIVE: CASE EVENT DATE: 20220705
